FAERS Safety Report 12412925 (Version 3)
Quarter: 2019Q4

REPORT INFORMATION
  Report Type: Spontaneous
  Country: US (occurrence: US)
  Receive Date: 20160527
  Receipt Date: 20191216
  Transmission Date: 20200122
  Serious: No
  Sender: FDA-Public Use
  Company Number: US-BIOGEN-2016BI00222401

PATIENT
  Sex: Female

DRUGS (1)
  1. TYSABRI [Suspect]
     Active Substance: NATALIZUMAB
     Indication: MULTIPLE SCLEROSIS
     Route: 065
     Dates: start: 20081014

REACTIONS (9)
  - Tinnitus [Not Recovered/Not Resolved]
  - Fatigue [Unknown]
  - Intervertebral disc protrusion [Unknown]
  - Decreased immune responsiveness [Not Recovered/Not Resolved]
  - Pain [Unknown]
  - Malaise [Unknown]
  - Infusion site bruising [Unknown]
  - Lumbar puncture [Not Recovered/Not Resolved]
  - Urinary tract infection [Unknown]
